FAERS Safety Report 14083806 (Version 1)
Quarter: 2017Q4

REPORT INFORMATION
  Report Type: Spontaneous
  Country: US (occurrence: US)
  Receive Date: 20171013
  Receipt Date: 20171013
  Transmission Date: 20180321
  Serious: No
  Sender: FDA-Public Use
  Company Number: PHEH2017US031988

PATIENT
  Sex: Female
  Weight: 64.85 kg

DRUGS (1)
  1. TRIAMTERENE/HCTZ CAPSULES USP [Suspect]
     Active Substance: HYDROCHLOROTHIAZIDE\TRIAMTERENE
     Indication: DIURETIC THERAPY
     Dosage: UNK, QD
     Route: 065
     Dates: end: 20170927

REACTIONS (5)
  - Weight increased [Not Recovered/Not Resolved]
  - Body height decreased [Not Recovered/Not Resolved]
  - Peripheral swelling [Not Recovered/Not Resolved]
  - Blood creatinine increased [Not Recovered/Not Resolved]
  - Dehydration [Not Recovered/Not Resolved]
